FAERS Safety Report 15886898 (Version 1)
Quarter: 2019Q1

REPORT INFORMATION
  Report Type: Spontaneous
  Country: SE (occurrence: SE)
  Receive Date: 20190130
  Receipt Date: 20190130
  Transmission Date: 20190417
  Serious: Yes (Death)
  Sender: FDA-Public Use
  Company Number: SE-ROCHE-2254945

PATIENT
  Age: 44 Year
  Sex: Female

DRUGS (1)
  1. MABTHERA [Suspect]
     Active Substance: RITUXIMAB
     Indication: MULTIPLE SCLEROSIS
     Route: 065
     Dates: start: 20161208

REACTIONS (2)
  - Pyrexia [Fatal]
  - Respiratory symptom [Fatal]

NARRATIVE: CASE EVENT DATE: 201812
